FAERS Safety Report 21271107 (Version 1)
Quarter: 2022Q3

REPORT INFORMATION
  Report Type: Spontaneous
  Country: ES (occurrence: ES)
  Receive Date: 20220830
  Receipt Date: 20220830
  Transmission Date: 20221027
  Serious: Yes (Other)
  Sender: FDA-Public Use
  Company Number: None

PATIENT
  Age: 84 Year
  Sex: Female

DRUGS (7)
  1. CETIRIZINE [Suspect]
     Active Substance: CETIRIZINE HYDROCHLORIDE
     Indication: Pruritus
     Dosage: 10.0 COMP C/24 H
     Route: 048
     Dates: start: 20220719, end: 20220802
  2. BIMATOPROST\TIMOLOL [Concomitant]
     Active Substance: BIMATOPROST\TIMOLOL
     Indication: Angle closure glaucoma
     Dosage: 1.0 GTS C/24 H (SOLUTION)
     Dates: start: 20090205
  3. OMEPRAZOL CINFA [Concomitant]
     Indication: Product used for unknown indication
     Dosage: 20.0 MG A-DE
     Route: 048
     Dates: start: 20201030
  4. CITALOPRAM HYDROBROMIDE [Concomitant]
     Active Substance: CITALOPRAM HYDROBROMIDE
     Indication: Anxiety
     Dosage: 20.0 MG C/24 H NOC
     Route: 048
     Dates: start: 20131002
  5. PARACETAMOL CINFA [Concomitant]
     Indication: Osteoarthritis
     Dosage: 650.0 MG DECOCE
     Route: 048
     Dates: start: 20160523
  6. SIMVASTATINA CINFA [Concomitant]
     Indication: Type IIa hyperlipidaemia
     Dosage: 20.0 MG CE
     Route: 048
     Dates: start: 20151015
  7. AZOPT [Concomitant]
     Active Substance: BRINZOLAMIDE
     Indication: Angle closure glaucoma
     Dosage: 1.0 GTS C/12 H
     Dates: start: 20090204

REACTIONS (2)
  - Urticaria [Recovered/Resolved]
  - Angioedema [Recovered/Resolved]

NARRATIVE: CASE EVENT DATE: 20220724
